FAERS Safety Report 13431034 (Version 4)
Quarter: 2017Q2

REPORT INFORMATION
  Report Type: Report from Study
  Country: BE (occurrence: BE)
  Receive Date: 20170412
  Receipt Date: 20170525
  Transmission Date: 20170830
  Serious: Yes (Hospitalization, Other)
  Sender: FDA-Public Use
  Company Number: PHHY2017BE045514

PATIENT
  Age: 78 Year
  Sex: Male

DRUGS (10)
  1. CAPTOPRIL. [Concomitant]
     Active Substance: CAPTOPRIL
     Indication: PRODUCT USED FOR UNKNOWN INDICATION
     Dosage: 25 MG, QD
     Route: 065
  2. OXYGEN. [Concomitant]
     Active Substance: OXYGEN
     Indication: PRODUCT USED FOR UNKNOWN INDICATION
     Dosage: UNK
     Route: 065
  3. LIPITOR [Concomitant]
     Active Substance: ATORVASTATIN CALCIUM
     Indication: PRODUCT USED FOR UNKNOWN INDICATION
     Dosage: 40 MG, UNK
     Route: 065
  4. SELOKEN [Concomitant]
     Active Substance: METOPROLOL
     Indication: PRODUCT USED FOR UNKNOWN INDICATION
     Dosage: 0.5 DF, QD
     Route: 065
  5. AFINITOR [Suspect]
     Active Substance: EVEROLIMUS
     Indication: PANCREATIC NEUROENDOCRINE TUMOUR
     Dosage: 10 MG, QD
     Route: 048
     Dates: start: 20170214
  6. AFINITOR [Suspect]
     Active Substance: EVEROLIMUS
     Dosage: 10 MG, QD
     Route: 048
     Dates: start: 20170220, end: 20170227
  7. GLUCOPHAGE [Concomitant]
     Active Substance: METFORMIN HYDROCHLORIDE
     Indication: PRODUCT USED FOR UNKNOWN INDICATION
     Dosage: 0.5 DF, TID
     Route: 065
  8. AFINITOR [Suspect]
     Active Substance: EVEROLIMUS
     Dosage: 5 MG, QD
     Route: 048
     Dates: start: 20170315, end: 20170509
  9. SINTROM [Concomitant]
     Active Substance: ACENOCOUMAROL
     Indication: PRODUCT USED FOR UNKNOWN INDICATION
     Dosage: UNK (ACCORDING TO INR)
     Route: 065
  10. SOMATOSTATIN [Concomitant]
     Active Substance: SOMATOSTATIN
     Indication: PRODUCT USED FOR UNKNOWN INDICATION
     Dosage: 120 MG, QMO
     Route: 058

REACTIONS (60)
  - Orthopnoea [Unknown]
  - Gait disturbance [Not Recovered/Not Resolved]
  - Hyperthyroidism [Recovered/Resolved]
  - Weight decreased [Recovered/Resolved]
  - Pancytopenia [Recovering/Resolving]
  - Eyelid oedema [Not Recovered/Not Resolved]
  - Malaise [Unknown]
  - Mean cell haemoglobin concentration decreased [Unknown]
  - Lipase increased [Unknown]
  - Lymphocyte count decreased [Unknown]
  - Red blood cell count decreased [Unknown]
  - Diarrhoea [Not Recovered/Not Resolved]
  - Cholestasis [Recovering/Resolving]
  - Fatigue [Not Recovered/Not Resolved]
  - Mitral valve incompetence [Unknown]
  - Pericardial effusion [Unknown]
  - Chromaturia [Unknown]
  - Chills [Not Recovered/Not Resolved]
  - Asthenia [Unknown]
  - Thrombocytopenia [Recovering/Resolving]
  - Gamma-glutamyltransferase increased [Unknown]
  - Eye disorder [Not Recovered/Not Resolved]
  - Micturition frequency decreased [Not Recovered/Not Resolved]
  - Right ventricular systolic pressure increased [Unknown]
  - Dysgeusia [Not Recovered/Not Resolved]
  - Haemoglobin decreased [Unknown]
  - Diarrhoea [Recovered/Resolved]
  - Dyspnoea [Unknown]
  - Pyrexia [Recovered/Resolved]
  - Sleep disorder [Unknown]
  - Penile swelling [Not Recovered/Not Resolved]
  - Protein total decreased [Unknown]
  - Rash [Not Recovered/Not Resolved]
  - Aortic valve stenosis [Unknown]
  - Decreased appetite [Recovered/Resolved]
  - Oedema peripheral [Unknown]
  - Lacrimation increased [Not Recovered/Not Resolved]
  - Ocular hyperaemia [Not Recovered/Not Resolved]
  - C-reactive protein increased [Unknown]
  - Blood alkaline phosphatase increased [Unknown]
  - Peripheral swelling [Not Recovered/Not Resolved]
  - Ejection fraction decreased [Unknown]
  - Type 2 diabetes mellitus [Unknown]
  - Moraxella infection [Recovering/Resolving]
  - Haematocrit decreased [Unknown]
  - Red cell distribution width increased [Unknown]
  - Blood creatinine decreased [Unknown]
  - Blood calcium decreased [Unknown]
  - Chronic obstructive pulmonary disease [Recovering/Resolving]
  - Concomitant disease aggravated [Recovered/Resolved]
  - Cachexia [Recovered/Resolved]
  - Pleural effusion [Unknown]
  - Tricuspid valve incompetence [Unknown]
  - Joint swelling [Not Recovered/Not Resolved]
  - Scrotal swelling [Not Recovered/Not Resolved]
  - Eosinophil count decreased [Unknown]
  - General physical health deterioration [Not Recovered/Not Resolved]
  - Neutrophil percentage increased [Unknown]
  - Blood albumin decreased [Unknown]
  - Blood glucose increased [Not Recovered/Not Resolved]

NARRATIVE: CASE EVENT DATE: 201702
